FAERS Safety Report 10073474 (Version 1)
Quarter: 2014Q2

REPORT INFORMATION
  Report Type: Spontaneous
  Country: TR (occurrence: TR)
  Receive Date: 20140411
  Receipt Date: 20140411
  Transmission Date: 20141212
  Serious: Yes (Other)
  Sender: FDA-Public Use
  Company Number: TR-WATSON-2014-06894

PATIENT
  Sex: 0

DRUGS (2)
  1. METOCLOPRAMIDE (UNKNOWN) [Suspect]
     Indication: GASTROOESOPHAGEAL REFLUX DISEASE
     Dosage: 0.1 MG/KG, BID
     Route: 065
  2. METOCLOPRAMIDE (UNKNOWN) [Suspect]
     Indication: IMPAIRED GASTRIC EMPTYING

REACTIONS (1)
  - Dystonia [Recovered/Resolved]
